FAERS Safety Report 20163985 (Version 1)
Quarter: 2021Q4

REPORT INFORMATION
  Report Type: Spontaneous
  Country: ZA (occurrence: CH)
  Receive Date: 20211209
  Receipt Date: 20211209
  Transmission Date: 20220303
  Serious: Yes (Death, Other)
  Sender: FDA-Public Use
  Company Number: ZA-ALVOGEN-2021-ALVOGEN-117870

PATIENT
  Age: 79 Year
  Sex: Male

DRUGS (1)
  1. FENTANYL [Suspect]
     Active Substance: FENTANYL
     Indication: Product used for unknown indication
     Dosage: 12.6 MG

REACTIONS (2)
  - Completed suicide [Fatal]
  - Intentional overdose [Fatal]

NARRATIVE: CASE EVENT DATE: 20200501
